FAERS Safety Report 6876992-8 (Version None)
Quarter: 2010Q3

REPORT INFORMATION
  Report Type: 
  Country: None (occurrence: None)
  Receive Date: 20100727
  Receipt Date: 20100713
  Transmission Date: 20110219
  Serious: Yes (Other)
  Sender: FDA-Public Use
  Company Number: CH-WATSON-2010-09269

PATIENT
  Sex: Female

DRUGS (2)
  1. TRELSTAR (WATSON LABORATORIES) [Suspect]
     Indication: BREAST CANCER
     Dosage: 3.75 MG, UNK
     Route: 030
     Dates: start: 20070330
  2. EXEMESTANE [Suspect]
     Indication: BREAST CANCER
     Dosage: 25 MG, UNK
     Route: 048
     Dates: start: 20070706

REACTIONS (2)
  - DYSPAREUNIA [None]
  - VULVOVAGINAL DRYNESS [None]
